FAERS Safety Report 6274128-8 (Version None)
Quarter: 2009Q3

REPORT INFORMATION
  Report Type: 
  Country: None (occurrence: None)
  Receive Date: 20090720
  Receipt Date: 20090716
  Transmission Date: 20100115
  Serious: Yes (Death)
  Sender: FDA-Public Use
  Company Number: PHHY2009BR29229

PATIENT
  Sex: Male

DRUGS (5)
  1. RASILEZ [Suspect]
     Indication: HEART RATE DECREASED
     Dosage: 150 MG, QD
  2. INSULIN [Concomitant]
     Indication: DIABETES MELLITUS
  3. SIMVASTATIN [Concomitant]
     Indication: BLOOD CHOLESTEROL ABNORMAL
  4. OMEPRAZOL [Concomitant]
  5. AMIODARONE HCL [Concomitant]
     Indication: CARDIAC DISORDER

REACTIONS (1)
  - TACHYCARDIA [None]
